FAERS Safety Report 8292448-2 (Version None)
Quarter: 2012Q2

REPORT INFORMATION
  Report Type: 
  Country: None (occurrence: None)
  Receive Date: 20120417
  Receipt Date: 20120411
  Transmission Date: 20120825
  Serious: Yes (Other)
  Sender: FDA-Public Use
  Company Number: BR-ROCHE-1019241

PATIENT
  Sex: Male
  Weight: 55 kg

DRUGS (1)
  1. ISOTRETINOIN [Suspect]
     Indication: ACNE
     Route: 048
     Dates: start: 20111120, end: 20111127

REACTIONS (3)
  - PYREXIA [None]
  - PLASMA CELLS INCREASED [None]
  - HEPATOSPLENOMEGALY [None]
